FAERS Safety Report 23042456 (Version 2)
Quarter: 2024Q2

REPORT INFORMATION
  Report Type: Spontaneous
  Country: US (occurrence: US)
  Receive Date: 20231008
  Receipt Date: 20240416
  Transmission Date: 20240716
  Serious: Yes (Hospitalization, Other)
  Sender: FDA-Public Use
  Company Number: US-BRISTOL-MYERS SQUIBB COMPANY-2023-141637

PATIENT
  Age: 76 Year
  Sex: Male
  Weight: 93.89 kg

DRUGS (1)
  1. REVLIMID [Suspect]
     Active Substance: LENALIDOMIDE
     Indication: Plasma cell myeloma
     Dosage: FREQUENCY- EVERY OTHER DAY
     Route: 048
     Dates: start: 20180921

REACTIONS (3)
  - Pneumonia [Unknown]
  - Off label use [Unknown]
  - Dry skin [Recovering/Resolving]
